FAERS Safety Report 25218718 (Version 1)
Quarter: 2025Q2

REPORT INFORMATION
  Report Type: Spontaneous
  Country: US (occurrence: US)
  Receive Date: 20250421
  Receipt Date: 20250421
  Transmission Date: 20250716
  Serious: Yes (Other)
  Sender: Kenvue
  Company Number: US-KENVUE-20250405057

PATIENT
  Sex: Female

DRUGS (1)
  1. AVEENO PROTECT HYDRATE SUNSCREEN BROAD SPECTRUM FACE SPF 60 [Suspect]
     Active Substance: AVOBENZONE\HOMOSALATE\OCTISALATE\OCTOCRYLENE
     Indication: Product used for unknown indication
     Route: 061

REACTIONS (1)
  - Chemical burns of eye [Unknown]
